FAERS Safety Report 4338487-5 (Version None)
Quarter: 2004Q2

REPORT INFORMATION
  Report Type: 
  Country: None (occurrence: None)
  Receive Date: 20040414
  Receipt Date: 20040408
  Transmission Date: 20050107
  Serious: Yes (Other)
  Sender: FDA-Public Use
  Company Number: US-GLAXOSMITHKLINE-A0506365A

PATIENT
  Sex: Female

DRUGS (3)
  1. WELLBUTRIN [Suspect]
     Indication: DEPRESSION
     Dosage: 300MG PER DAY
     Route: 048
  2. CALCIUM + MAGNESIUM SUPPLEMENT [Concomitant]
  3. ZOLOFT [Concomitant]
     Dosage: 100MG PER DAY

REACTIONS (4)
  - DISTURBANCE IN ATTENTION [None]
  - DIZZINESS [None]
  - MUSCLE TWITCHING [None]
  - NEPHROLITHIASIS [None]
